FAERS Safety Report 7177326-4 (Version None)
Quarter: 2010Q4

REPORT INFORMATION
  Report Type: 
  Country: None (occurrence: None)
  Receive Date: 20101220
  Receipt Date: 20101213
  Transmission Date: 20110411
  Serious: Yes (Hospitalization, Other)
  Sender: FDA-Public Use
  Company Number: US-PFIZER INC-US-WYE-H18129710

PATIENT
  Age: 49 Year
  Sex: Male
  Weight: 144 kg

DRUGS (1)
  1. TORISEL [Suspect]
     Indication: METASTATIC RENAL CELL CARCINOMA
     Dosage: UNK
     Route: 042
     Dates: start: 20100901, end: 20100929

REACTIONS (3)
  - EOSINOPHILIA [None]
  - GASTROENTERITIS [None]
  - OEDEMA PERIPHERAL [None]
